FAERS Safety Report 16494492 (Version 1)
Quarter: 2019Q2

REPORT INFORMATION
  Report Type: Spontaneous
  Country: US (occurrence: US)
  Receive Date: 20190628
  Receipt Date: 20190628
  Transmission Date: 20190711
  Serious: No
  Sender: FDA-Public Use
  Company Number: US-SA-2019SA172154

PATIENT
  Age: 65 Year
  Sex: Female
  Weight: 38.1 kg

DRUGS (4)
  1. LISINOPRIL. [Concomitant]
     Active Substance: LISINOPRIL
  2. AUBAGIO [Suspect]
     Active Substance: TERIFLUNOMIDE
     Indication: MULTIPLE SCLEROSIS
     Dosage: 7 MG, QD
     Route: 048
     Dates: start: 20190503, end: 20190614
  3. GABAPENTIN. [Concomitant]
     Active Substance: GABAPENTIN
  4. OXYBUTIN [Concomitant]
     Active Substance: OXYBUTYNIN

REACTIONS (4)
  - Diarrhoea [Unknown]
  - Nausea [Unknown]
  - Constipation [Unknown]
  - Vomiting [Unknown]

NARRATIVE: CASE EVENT DATE: 2019
